FAERS Safety Report 7770856-3 (Version None)
Quarter: 2011Q3

REPORT INFORMATION
  Report Type: 
  Country: None (occurrence: None)
  Receive Date: 20110922
  Receipt Date: 20100915
  Transmission Date: 20111222
  Serious: No
  Sender: FDA-Public Use
  Company Number: US-ASTRAZENECA-2010SE43365

PATIENT
  Age: 45 Year
  Sex: Male
  Weight: 99.8 kg

DRUGS (1)
  1. SEROQUEL [Suspect]
     Indication: CRANIOCEREBRAL INJURY
     Route: 048

REACTIONS (3)
  - MOOD ALTERED [None]
  - THERAPEUTIC PROCEDURE [None]
  - DRUG DOSE OMISSION [None]
